FAERS Safety Report 5432168-2 (Version None)
Quarter: 2007Q3

REPORT INFORMATION
  Report Type: 
  Country: None (occurrence: None)
  Receive Date: 20070830
  Receipt Date: 20070828
  Transmission Date: 20080115
  Serious: Yes (Disabling)
  Sender: FDA-Public Use
  Company Number: US-MERCK-0708USA05259

PATIENT
  Age: 53 Year
  Sex: Female

DRUGS (5)
  1. FOSAMAX [Suspect]
     Indication: OSTEOPENIA
     Route: 048
     Dates: start: 20070715, end: 20070722
  2. ALBUTEROL [Concomitant]
     Route: 065
  3. VICODIN [Concomitant]
     Route: 065
  4. KLOR-CON [Concomitant]
     Route: 065
  5. ESTRACE [Concomitant]
     Route: 065

REACTIONS (3)
  - ARTHRALGIA [None]
  - MYALGIA [None]
  - SENSATION OF HEAVINESS [None]
